FAERS Safety Report 21878698 (Version 1)
Quarter: 2023Q1

REPORT INFORMATION
  Report Type: Spontaneous
  Country: US (occurrence: None)
  Receive Date: 20230117
  Receipt Date: 20230117
  Transmission Date: 20230417
  Serious: No
  Sender: FDA-Public Use
  Company Number: None

PATIENT
  Age: 89 Year
  Sex: Female
  Weight: 86.18 kg

DRUGS (10)
  1. ROSUVASTATIN CALCIUM [Suspect]
     Active Substance: ROSUVASTATIN CALCIUM
     Indication: Blood cholesterol
     Dosage: FREQUENCY : AT BEDTIME;?
     Route: 048
     Dates: start: 20221230, end: 20221231
  2. METOPROLOL [Concomitant]
     Active Substance: METOPROLOL
  3. ELIQUIS [Concomitant]
     Active Substance: APIXABAN
  4. DILTIAZEM [Concomitant]
  5. GLUCOSMINE CONDRIOTIAN [Concomitant]
  6. CQ-10 [Concomitant]
  7. O.N.E. MULTIVITAMIN [Concomitant]
  8. VITAMIN D3 [Concomitant]
     Active Substance: CHOLECALCIFEROL
  9. PRASTERONE [Concomitant]
     Active Substance: PRASTERONE
  10. BRAIN VITALE [Concomitant]

REACTIONS (7)
  - Feeling cold [None]
  - Tremor [None]
  - Insomnia [None]
  - Asthenia [None]
  - Bone pain [None]
  - Nausea [None]
  - Anxiety [None]

NARRATIVE: CASE EVENT DATE: 20221230
